FAERS Safety Report 6080039-3 (Version None)
Quarter: 2009Q1

REPORT INFORMATION
  Report Type: 
  Country: None (occurrence: None)
  Receive Date: 20090217
  Receipt Date: 20090212
  Transmission Date: 20090719
  Serious: Yes (Death, Hospitalization)
  Sender: FDA-Public Use
  Company Number: US-TYCO HEALTHCARE/MALLINCKRODT-T200900008

PATIENT
  Sex: Male
  Weight: 36.6 kg

DRUGS (15)
  1. OXYCODONE [Suspect]
     Indication: NASAL SINUS CANCER
     Dosage: 80 MG, BID
     Dates: start: 20080417, end: 20080523
  2. OXYCODONE [Suspect]
     Dosage: 160 MG, UNK
     Dates: start: 20080524, end: 20080609
  3. SUNITINIB [Suspect]
     Indication: SQUAMOUS CELL CARCINOMA
     Dosage: 37.5 MG, QD
     Route: 048
     Dates: start: 20080428, end: 20080523
  4. DECADRON [Suspect]
     Dosage: 8 MG,4X/DAY
     Dates: start: 20080401, end: 20080523
  5. DILAUDID [Suspect]
     Dosage: UNK
  6. TOPAMAX [Concomitant]
  7. FLEXERIL [Concomitant]
  8. CELEBREX [Concomitant]
  9. SINGULAIR [Concomitant]
  10. LYRICA [Concomitant]
  11. COLACE [Concomitant]
  12. LACTULOSE [Concomitant]
  13. NORTRIPTYLINE HCL [Concomitant]
  14. ZOFRAN [Concomitant]
  15. MIRALAX [Concomitant]

REACTIONS (6)
  - MENTAL STATUS CHANGES [None]
  - NECK PAIN [None]
  - NEUTROPENIA [None]
  - PNEUMONIA STAPHYLOCOCCAL [None]
  - RESPIRATORY FAILURE [None]
  - STAPHYLOCOCCAL SEPSIS [None]
